FAERS Safety Report 22041651 (Version 1)
Quarter: 2023Q1

REPORT INFORMATION
  Report Type: Spontaneous
  Country: US (occurrence: US)
  Receive Date: 20230227
  Receipt Date: 20230227
  Transmission Date: 20230417
  Serious: Yes (Life-Threatening, Hospitalization)
  Sender: FDA-Public Use
  Company Number: US-MYLANLABS-2023M1021590

PATIENT
  Age: 11 Year
  Sex: Male

DRUGS (17)
  1. DOXAZOSIN [Interacting]
     Active Substance: DOXAZOSIN MESYLATE
     Indication: Phaeochromocytoma
     Dosage: 1 MILLIGRAM, QD
     Route: 065
  2. DOXAZOSIN [Interacting]
     Active Substance: DOXAZOSIN MESYLATE
     Dosage: 2 MILLIGRAM, BID
     Route: 065
  3. EPINEPHRINE [Interacting]
     Active Substance: EPINEPHRINE
     Indication: Vasoplegia syndrome
     Dosage: 5 MICROGRAM; BOLUS
     Route: 042
  4. ATENOLOL [Suspect]
     Active Substance: ATENOLOL
     Indication: Hypertension
     Dosage: UNK
     Route: 065
  5. VASOPRESSIN [Suspect]
     Active Substance: VASOPRESSIN
     Indication: Vasoplegia syndrome
     Dosage: UNK; BOLUS; 4.4U OVER 10MIN
     Route: 042
  6. VASOPRESSIN [Suspect]
     Active Substance: VASOPRESSIN
     Dosage: UNK; INFUSION; ESCALATING VASOPRESSIN INFUSION..
     Route: 042
  7. ANGIOTENSIN II [Suspect]
     Active Substance: ANGIOTENSIN II
     Indication: Vasoplegia syndrome
     Dosage: UNK UNK, QMINUTE; INFUSION; DOSE OF ANGIOTENSIN II WAS INCREASED ..
     Route: 042
  8. HYDROXOCOBALAMIN [Concomitant]
     Active Substance: HYDROXOCOBALAMIN
     Indication: Vasoplegia syndrome
     Dosage: 5 GRAM; 5G IN TWO EQUALLY DIVIDED..
     Route: 042
  9. MIDAZOLAM [Concomitant]
     Active Substance: MIDAZOLAM
     Indication: Premedication
     Dosage: 2 MILLIGRAM
     Route: 042
  10. LIDOCAINE [Concomitant]
     Active Substance: LIDOCAINE
     Indication: Local anaesthesia
     Dosage: 40 MILLIGRAM
     Route: 065
  11. LIDOCAINE [Concomitant]
     Active Substance: LIDOCAINE
     Dosage: 120 MILLIGRAM
     Route: 065
  12. FENTANYL [Concomitant]
     Active Substance: FENTANYL
     Indication: General anaesthesia
     Dosage: 200 MICROGRAM
     Route: 065
  13. PROPOFOL [Concomitant]
     Active Substance: PROPOFOL
     Indication: General anaesthesia
     Dosage: 300 MILLIGRAM
     Route: 042
  14. ROCURONIUM [Concomitant]
     Active Substance: ROCURONIUM BROMIDE
     Indication: Neuromuscular blockade
     Dosage: 50 MILLIGRAM
     Route: 042
  15. HYDROMORPHONE [Concomitant]
     Active Substance: HYDROMORPHONE
     Indication: Analgesic therapy
     Dosage: 0.4 MILLIGRAM
     Route: 065
  16. SEVOFLURANE [Concomitant]
     Active Substance: SEVOFLURANE
     Indication: General anaesthesia
     Dosage: UNK
     Route: 045
  17. DEXMEDETOMIDINE [Concomitant]
     Active Substance: DEXMEDETOMIDINE
     Indication: Neuromuscular blockade
     Dosage: UNK; INFUSION
     Route: 042

REACTIONS (3)
  - Drug ineffective [Unknown]
  - Drug interaction [Unknown]
  - Off label use [Unknown]
